FAERS Safety Report 7672235-6 (Version None)
Quarter: 2011Q3

REPORT INFORMATION
  Report Type: 
  Country: None (occurrence: None)
  Receive Date: 20110809
  Receipt Date: 20110728
  Transmission Date: 20111222
  Serious: Yes (Other)
  Sender: FDA-Public Use
  Company Number: PHFR2010GB05721

PATIENT
  Sex: Female

DRUGS (8)
  1. OMEPRAZOLE [Concomitant]
     Dosage: 20 MG, QD
  2. MEBEVERINE [Concomitant]
     Dosage: 135 MG, QD
  3. OLANZAPINE [Concomitant]
     Dosage: 5 MG AM, 15 MG PM
  4. LAMOTRIGINE [Concomitant]
     Dosage: 100 MG AM, 150 MG PM
  5. CLOZAPINE [Suspect]
     Route: 048
     Dates: start: 20100303, end: 19000101
  6. CLOZAPINE [Suspect]
     Indication: SCHIZOPHRENIA
     Dosage: 75 MG MANE, 200 MG NOCTE
     Route: 048
     Dates: start: 20100303, end: 20101201
  7. ELLESTE-SOLO [Concomitant]
     Dosage: 2 MG, QD
  8. VITAMIN B KOMPLEX [Concomitant]
     Dosage: 1 DF QD AT NIGHT

REACTIONS (8)
  - ALANINE AMINOTRANSFERASE INCREASED [None]
  - OEDEMA PERIPHERAL [None]
  - DIARRHOEA [None]
  - NEUTROPHIL COUNT DECREASED [None]
  - BLOOD ALKALINE PHOSPHATASE INCREASED [None]
  - NASOPHARYNGITIS [None]
  - WEIGHT INCREASED [None]
  - WHITE BLOOD CELL COUNT DECREASED [None]
